FAERS Safety Report 6150904-7 (Version None)
Quarter: 2009Q2

REPORT INFORMATION
  Report Type: 
  Country: None (occurrence: None)
  Receive Date: 20090408
  Receipt Date: 20090327
  Transmission Date: 20091009
  Serious: Yes (Hospitalization)
  Sender: FDA-Public Use
  Company Number: 8043214

PATIENT
  Age: 29 Year
  Sex: Female
  Weight: 90 kg

DRUGS (19)
  1. CIMZIA [Suspect]
     Indication: CROHN'S DISEASE
     Dosage: 400 MG /M SC
     Route: 058
     Dates: start: 20080722
  2. OXYCODONE HCL [Concomitant]
  3. LIDOCAINE VISCOUS /00033402/ [Concomitant]
  4. NYSTATIN LEDERLE [Concomitant]
  5. CYMBALTA [Concomitant]
  6. CLARITIN-D [Concomitant]
  7. TYLENOL [Concomitant]
  8. BETAMETHASONE 0.1% CREAM [Concomitant]
  9. LEVAQUIN [Concomitant]
  10. FISH OIL [Concomitant]
  11. PAPAYA ENZYME [Concomitant]
  12. VITAMIN D [Concomitant]
  13. WELLBUTRIN [Concomitant]
  14. PHENERGAN [Concomitant]
  15. ZINC OXIDE [Concomitant]
  16. BENADRYL [Concomitant]
  17. HYDROCORTISON 2.5% CREAM [Concomitant]
  18. DURAGESIC-100 [Concomitant]
  19. DOCUSATE SODIUM [Concomitant]

REACTIONS (4)
  - BACTERIAL INFECTION [None]
  - CARDIAC DISORDER [None]
  - CATHETER RELATED INFECTION [None]
  - MASS [None]
